FAERS Safety Report 5898845-4 (Version None)
Quarter: 2008Q3

REPORT INFORMATION
  Report Type: 
  Country: None (occurrence: None)
  Receive Date: 20080925
  Receipt Date: 20080728
  Transmission Date: 20090109
  Serious: No
  Sender: FDA-Public Use
  Company Number: A0739765A

PATIENT
  Age: 53 Year
  Sex: Male

DRUGS (3)
  1. BUPROPION HCL [Suspect]
     Indication: DEPRESSION
     Dosage: 750MG PER DAY
     Route: 048
     Dates: start: 20080714, end: 20080720
  2. LIPITOR [Concomitant]
  3. EFFEXOR [Concomitant]

REACTIONS (4)
  - DISCOMFORT [None]
  - DRUG ADMINISTRATION ERROR [None]
  - FEELING ABNORMAL [None]
  - HEADACHE [None]
